FAERS Safety Report 11094985 (Version 21)
Quarter: 2022Q1

REPORT INFORMATION
  Report Type: Report from Study
  Country: US (occurrence: US)
  Receive Date: 20150506
  Receipt Date: 20220128
  Transmission Date: 20220423
  Serious: Yes (Hospitalization, Disabling, Other)
  Sender: FDA-Public Use
  Company Number: US-JAZZ-2014-US-013347

PATIENT
  Age: 34 Year
  Sex: Female
  Weight: 45.805 kg

DRUGS (34)
  1. XYREM [Suspect]
     Active Substance: SODIUM OXYBATE
     Indication: Narcolepsy
     Dosage: 1.5 GRAM, BID
     Route: 048
     Dates: start: 200803, end: 2008
  2. XYREM [Suspect]
     Active Substance: SODIUM OXYBATE
     Indication: Cataplexy
     Dosage: 2.25 GRAM, BID
     Route: 048
     Dates: start: 200812
  3. XYREM [Suspect]
     Active Substance: SODIUM OXYBATE
     Indication: Ehlers-Danlos syndrome
     Dosage: 2.25 GRAM, BID
     Route: 048
     Dates: start: 200905, end: 200905
  4. XYREM [Suspect]
     Active Substance: SODIUM OXYBATE
     Dosage: 4.5 GRAM, BID
     Route: 048
     Dates: start: 200906, end: 2009
  5. XYREM [Suspect]
     Active Substance: SODIUM OXYBATE
     Dosage: 4.5 GRAM, BID
     Route: 048
     Dates: start: 200911, end: 2009
  6. XYREM [Suspect]
     Active Substance: SODIUM OXYBATE
     Dosage: 4.5 GRAM, BID
     Route: 048
     Dates: start: 201307, end: 2013
  7. XYREM [Suspect]
     Active Substance: SODIUM OXYBATE
     Dosage: 4.5 GRAM, BID
     Route: 048
     Dates: start: 201309, end: 2013
  8. XYREM [Suspect]
     Active Substance: SODIUM OXYBATE
     Dosage: 4.5 GRAM, BID
     Route: 048
     Dates: start: 201402
  9. XYREM [Suspect]
     Active Substance: SODIUM OXYBATE
     Dosage: 3 GRAM, TID
     Route: 048
     Dates: start: 2014
  10. XYREM [Suspect]
     Active Substance: SODIUM OXYBATE
     Dosage: UNKNOWN DOSE
     Route: 048
  11. XYREM [Suspect]
     Active Substance: SODIUM OXYBATE
     Dosage: 4.5 GRAM, BID
     Route: 048
  12. XYREM [Suspect]
     Active Substance: SODIUM OXYBATE
     Dosage: 3 GRAM, TID
     Route: 048
  13. ZANAFLEX [Suspect]
     Active Substance: TIZANIDINE HYDROCHLORIDE
     Indication: Torticollis
     Dosage: 2-4 MG, PRN
     Route: 048
     Dates: start: 20010101
  14. BACLOFEN [Suspect]
     Active Substance: BACLOFEN
     Indication: Pain
     Dosage: UNK
  15. TESTOSTERONE [Suspect]
     Active Substance: TESTOSTERONE
     Indication: Product used for unknown indication
     Dosage: UNK
     Dates: end: 20170809
  16. PYRIDOSTIGMINE [Concomitant]
     Active Substance: PYRIDOSTIGMINE
     Indication: Impaired gastric emptying
     Dosage: 60 MG, TID
     Route: 048
     Dates: start: 20131013
  17. PROPRANOLOL [Concomitant]
     Active Substance: PROPRANOLOL HYDROCHLORIDE
     Indication: Rapid eye movements sleep abnormal
     Dosage: 60 MG, QD
     Route: 048
     Dates: start: 20141013
  18. DIHYDROERGOTAMINE [Concomitant]
     Active Substance: DIHYDROERGOTAMINE
     Indication: Migraine
     Dosage: UNK, PRN
     Route: 030
  19. FENTANYL [Concomitant]
     Active Substance: FENTANYL
     Indication: Pain
     Dosage: 75 ?G, UNK
     Route: 061
     Dates: start: 20070202
  20. FENTANYL [Concomitant]
     Active Substance: FENTANYL
     Dosage: 100 ?G, UNK
     Dates: start: 2014
  21. FENTANYL [Concomitant]
     Active Substance: FENTANYL
     Dosage: 75 ?G, UNK
     Route: 061
     Dates: start: 2014
  22. METHADONE [Concomitant]
     Active Substance: METHADONE HYDROCHLORIDE
     Indication: Pain
     Dosage: 20 MG, BID
     Route: 048
     Dates: start: 20130729
  23. MORPHINE SULFATE [Concomitant]
     Active Substance: MORPHINE SULFATE
     Indication: Pain
     Dosage: 60 MG, PRN
     Route: 048
     Dates: start: 20130729
  24. KLONOPIN [Concomitant]
     Active Substance: CLONAZEPAM
     Indication: Torticollis
     Dosage: 0.5 MG, BID
     Route: 048
  25. KLONOPIN [Concomitant]
     Active Substance: CLONAZEPAM
     Indication: Pain
  26. CYCLOBENZAPRINE HYDROCHLORIDE [Concomitant]
     Active Substance: CYCLOBENZAPRINE HYDROCHLORIDE
     Indication: Torticollis
     Dosage: 10 MG, TID
     Route: 048
     Dates: start: 20130729
  27. DRONABINOL [Concomitant]
     Active Substance: DRONABINOL
     Indication: Prophylaxis
     Dosage: 2.5 MG, BID
     Route: 048
     Dates: start: 20130729
  28. ADDERALL [Concomitant]
     Active Substance: AMPHETAMINE ASPARTATE\AMPHETAMINE SULFATE\DEXTROAMPHETAMINE SACCHARATE\DEXTROAMPHETAMINE SULFATE
     Indication: Depressed level of consciousness
     Dosage: 20 MG, BID
     Route: 048
  29. METHYLPHENIDATE [Concomitant]
     Active Substance: METHYLPHENIDATE
     Indication: Narcolepsy
     Dosage: 20 MG, TID
     Route: 048
     Dates: start: 20130729
  30. METHYLPHENIDATE HYDROCHLORIDE [Concomitant]
     Active Substance: METHYLPHENIDATE HYDROCHLORIDE
     Indication: Narcolepsy
     Dosage: 20 MG, PRN
     Route: 048
  31. NUVARING [Concomitant]
     Active Substance: ETHINYL ESTRADIOL\ETONOGESTREL
     Indication: Dysmenorrhoea
  32. KETOROLAC TROMETHAMINE [Concomitant]
     Active Substance: KETOROLAC TROMETHAMINE
     Indication: Migraine
     Dosage: 15.75 MG, PRN
     Route: 045
  33. ONDANSETRON HYDROCHLORIDE [Concomitant]
     Active Substance: ONDANSETRON HYDROCHLORIDE
     Indication: Nausea
     Dosage: UNK
     Dates: start: 20130729
  34. XEOMIN [Concomitant]
     Active Substance: INCOBOTULINUMTOXINA
     Indication: Product used for unknown indication
     Dosage: UNK
     Dates: start: 20130728

REACTIONS (36)
  - Surgery [Unknown]
  - Small fibre neuropathy [Not Recovered/Not Resolved]
  - Wound dehiscence [Recovering/Resolving]
  - Post procedural complication [Unknown]
  - Impaired gastric emptying [Not Recovered/Not Resolved]
  - Condition aggravated [Not Recovered/Not Resolved]
  - Gait inability [Recovering/Resolving]
  - Adrenal insufficiency [Not Recovered/Not Resolved]
  - Nerve injury [Unknown]
  - Hyperaldosteronism [Not Recovered/Not Resolved]
  - Muscle atrophy [Recovering/Resolving]
  - Neurogenic bladder [Not Recovered/Not Resolved]
  - Bradycardia [Recovering/Resolving]
  - Spinal cord injury [Unknown]
  - Neurogenic bowel [Unknown]
  - Iron deficiency [Recovered/Resolved]
  - Dyspnoea [Recovering/Resolving]
  - Post-traumatic neck syndrome [Unknown]
  - Speech disorder [Recovering/Resolving]
  - Hypovitaminosis [Unknown]
  - Tissue expansion procedure [Unknown]
  - Hypopituitarism [Unknown]
  - Hyponatraemia [Not Recovered/Not Resolved]
  - Stress [Unknown]
  - Hirsutism [Unknown]
  - Cyst [Unknown]
  - Muscle spasticity [Unknown]
  - Gastrointestinal hypermotility [Not Recovered/Not Resolved]
  - Dehydration [Recovering/Resolving]
  - Sedation [Unknown]
  - Vomiting [Recovering/Resolving]
  - Pain [Not Recovered/Not Resolved]
  - Decreased appetite [Unknown]
  - Somnolence [Unknown]
  - Therapeutic response decreased [Unknown]
  - Fluid retention [Unknown]

NARRATIVE: CASE EVENT DATE: 20141201
